FAERS Safety Report 5592460-8 (Version None)
Quarter: 2007Q4

REPORT INFORMATION
  Report Type: 
  Country: None (occurrence: None)
  Receive Date: 20071217
  Receipt Date: 20070911
  Transmission Date: 20080405
  Serious: No
  Sender: FDA-Public Use
  Company Number: BDI-010271

PATIENT
  Age: 50 Year
  Sex: Female
  Weight: 54 kg

DRUGS (4)
  1. MULTIHANCE [Suspect]
     Indication: NUCLEAR MAGNETIC RESONANCE IMAGING
     Dosage: 10 ML ONCE IV
     Route: 042
     Dates: start: 20070910, end: 20070910
  2. DURATAMOXIFEN [Concomitant]
  3. BONIVA [Concomitant]
  4. PRILOSEC [Concomitant]

REACTIONS (1)
  - HYPERSENSITIVITY [None]
